FAERS Safety Report 8275840-1 (Version None)
Quarter: 2012Q2

REPORT INFORMATION
  Report Type: 
  Country: None (occurrence: None)
  Receive Date: 20120410
  Receipt Date: 20120410
  Transmission Date: 20120825
  Serious: Yes (Death)
  Sender: FDA-Public Use
  Company Number: None

PATIENT
  Age: 63 Year
  Sex: Male

DRUGS (13)
  1. ZOLPIDEM [Concomitant]
  2. NORTRIPTYLINE HCL [Concomitant]
  3. REVLIMID [Suspect]
     Indication: MULTIPLE MYELOMA
     Dosage: REVLIMID 10 MG DAILY ORALLY
     Route: 048
     Dates: start: 20101201, end: 20120301
  4. SIMVASTATIN [Concomitant]
  5. ATENOLOL [Concomitant]
  6. METHADONE HCL [Concomitant]
  7. FINASTERIDE [Concomitant]
  8. HYDROCODONE BITARTRATE AND ACETAMINOPHEN [Concomitant]
  9. PAROXETINE [Concomitant]
  10. TERAZOSIN HCL [Concomitant]
  11. OMEPRAZOLE [Concomitant]
  12. LORAZEPAM [Concomitant]
  13. ACYCLOVIR [Concomitant]

REACTIONS (8)
  - HYPERHIDROSIS [None]
  - PANCYTOPENIA [None]
  - PLEURAL EFFUSION [None]
  - NECROSIS [None]
  - RESPIRATORY FAILURE [None]
  - RESPIRATORY DISTRESS [None]
  - PNEUMONIA STAPHYLOCOCCAL [None]
  - MORAXELLA INFECTION [None]
